FAERS Safety Report 9612094 (Version 1)
Quarter: 2013Q4

REPORT INFORMATION
  Report Type: Spontaneous
  Country: US (occurrence: US)
  Receive Date: 20131010
  Receipt Date: 20131010
  Transmission Date: 20140711
  Serious: No
  Sender: FDA-Public Use
  Company Number: US-MYLANLABS-2013S1003716

PATIENT
  Sex: Female
  Weight: 52.62 kg

DRUGS (5)
  1. CARBIDOPA AND LEVODOPA TABLETS USP [Suspect]
     Indication: PARKINSON^S DISEASE
     Route: 048
  2. CARBIDOPA AND LEVODOPA ORALLY DISINTEGRATING TABLETS [Suspect]
     Indication: PARKINSON^S DISEASE
     Route: 048
     Dates: start: 201301
  3. BACLOFEN [Concomitant]
     Indication: PARKINSON^S DISEASE
     Route: 048
  4. AMANTADINE [Concomitant]
     Indication: PARKINSON^S DISEASE
  5. ESTRADIOL [Concomitant]
     Indication: HORMONE REPLACEMENT THERAPY
     Route: 048

REACTIONS (1)
  - Muscle spasms [Not Recovered/Not Resolved]
